FAERS Safety Report 8122120-0 (Version None)
Quarter: 2012Q1

REPORT INFORMATION
  Report Type: 
  Country: None (occurrence: None)
  Receive Date: 20120208
  Receipt Date: 20120127
  Transmission Date: 20120608
  Serious: Yes (Death)
  Sender: FDA-Public Use
  Company Number: FR-ROCHE-1034989

PATIENT
  Sex: Female

DRUGS (1)
  1. VEMURAFENIB [Suspect]
     Indication: PRODUCT USED FOR UNKNOWN INDICATION
     Dates: start: 20111110

REACTIONS (1)
  - HAEMORRHAGIC ANAEMIA [None]
